FAERS Safety Report 11839957 (Version 1)
Quarter: 2015Q4

REPORT INFORMATION
  Report Type: Spontaneous
  Country: MY (occurrence: MY)
  Receive Date: 20151216
  Receipt Date: 20151216
  Transmission Date: 20160305
  Serious: Yes (Other)
  Sender: FDA-Public Use
  Company Number: MY-ACTAVIS-2015-27513

PATIENT
  Age: 21 Year
  Sex: Female

DRUGS (2)
  1. METOCLOPRAMIDE. [Suspect]
     Active Substance: METOCLOPRAMIDE
     Indication: VOMITING
  2. METOCLOPRAMIDE. [Suspect]
     Active Substance: METOCLOPRAMIDE
     Indication: NAUSEA
     Dosage: 10 MG, TWO TIMES USED
     Route: 048

REACTIONS (3)
  - Joint stiffness [Unknown]
  - Muscle spasms [Unknown]
  - Eye disorder [Unknown]

NARRATIVE: CASE EVENT DATE: 20140514
